FAERS Safety Report 18939333 (Version 5)
Quarter: 2021Q4

REPORT INFORMATION
  Report Type: Report from Study
  Country: CN (occurrence: CN)
  Receive Date: 20210224
  Receipt Date: 20211028
  Transmission Date: 20220303
  Serious: Yes (Hospitalization)
  Sender: FDA-Public Use
  Company Number: CN-KARYOPHARM THERAPEUTICS, INC.-2021KPT000238

PATIENT
  Age: 68 Year
  Sex: Male

DRUGS (4)
  1. SELINEXOR [Suspect]
     Active Substance: SELINEXOR
     Indication: Lung adenocarcinoma stage IV
     Dosage: 60 MG, 2X/WEEK
     Route: 048
     Dates: start: 20201214, end: 20210211
  2. OLANZAPINE [Concomitant]
     Active Substance: OLANZAPINE
     Indication: Prophylaxis
     Dosage: 5 MG, QD
     Route: 048
     Dates: start: 20201214
  3. LEVOFLOXACIN [Concomitant]
     Active Substance: LEVOFLOXACIN
     Indication: Pneumonia
     Dosage: 2 DOSAGE FORM, TID
     Route: 048
     Dates: start: 20210130
  4. COMPOUND METHOXYPHENAMINE [Concomitant]
     Indication: Tachypnoea
     Dosage: 2 DOSAGE FORM, BID
     Route: 048
     Dates: start: 20210130

REACTIONS (1)
  - Tachypnoea [Not Recovered/Not Resolved]

NARRATIVE: CASE EVENT DATE: 20210211
